FAERS Safety Report 10748713 (Version 1)
Quarter: 2014Q4

REPORT INFORMATION
  Report Type: Spontaneous
  Country: US (occurrence: None)
  Receive Date: 20141202
  Receipt Date: 20141202
  Transmission Date: 20150529
  Serious: No
  Sender: FDA-Public Use
  Company Number: 2013TUS000001

PATIENT
  Age: 48 Year
  Sex: Male

DRUGS (1)
  1. KAZANO [Suspect]
     Active Substance: ALOGLIPTIN BENZOATE\METFORMIN HYDROCHLORIDE
     Indication: TYPE 2 DIABETES MELLITUS
     Route: 048
     Dates: start: 20130823

REACTIONS (3)
  - Cough [None]
  - Pruritus [None]
  - Sneezing [None]

NARRATIVE: CASE EVENT DATE: 20130825
